FAERS Safety Report 12616924 (Version 2)
Quarter: 2016Q3

REPORT INFORMATION
  Report Type: Spontaneous
  Country: US (occurrence: US)
  Receive Date: 20160802
  Receipt Date: 20160815
  Transmission Date: 20161109
  Serious: No
  Sender: FDA-Public Use
  Company Number: US-AMGEN-USASP2016095539

PATIENT
  Age: 67 Year
  Sex: Female

DRUGS (2)
  1. ENBREL [Suspect]
     Active Substance: ETANERCEPT
     Indication: PRODUCT USED FOR UNKNOWN INDICATION
     Dosage: UNK
     Route: 065
  2. XELJANZ [Concomitant]
     Active Substance: TOFACITINIB CITRATE
     Indication: RHEUMATOID ARTHRITIS
     Dosage: 5 MG, BID
     Route: 065
     Dates: start: 20160331, end: 20160601

REACTIONS (7)
  - Urinary tract infection [Unknown]
  - Oropharyngeal pain [Unknown]
  - Pollakiuria [Unknown]
  - Extra dose administered [Unknown]
  - Tremor [Recovered/Resolved]
  - Cough [Recovered/Resolved]
  - Chills [Unknown]

NARRATIVE: CASE EVENT DATE: 201504
